FAERS Safety Report 10933038 (Version 1)
Quarter: 2015Q1

REPORT INFORMATION
  Report Type: Spontaneous
  Country: US (occurrence: None)
  Receive Date: 20150319
  Receipt Date: 20150319
  Transmission Date: 20150721
  Serious: No
  Sender: FDA-Public Use
  Company Number: 2015CT000035

PATIENT
  Age: 64 Year
  Sex: Male

DRUGS (3)
  1. KORLYM [Suspect]
     Active Substance: MIFEPRISTONE
     Indication: ACROMEGALY
     Route: 048
     Dates: start: 20141114
  2. KORLYM [Suspect]
     Active Substance: MIFEPRISTONE
     Indication: GIGANTISM
     Route: 048
     Dates: start: 20141114
  3. TAMSULOSIN [Concomitant]
     Active Substance: TAMSULOSIN

REACTIONS (2)
  - Off label use [None]
  - Anxiety [None]

NARRATIVE: CASE EVENT DATE: 201501
